FAERS Safety Report 4979853-4 (Version None)
Quarter: 2006Q2

REPORT INFORMATION
  Report Type: 
  Country: None (occurrence: None)
  Receive Date: 20060421
  Receipt Date: 20050701
  Transmission Date: 20061013
  Serious: Yes (Death, Hospitalization, Disabling)
  Sender: FDA-Public Use
  Company Number: US-MERCK-0507USA00284

PATIENT
  Age: 54 Year
  Sex: Male

DRUGS (11)
  1. VIOXX [Suspect]
     Indication: OSTEOARTHRITIS
     Route: 048
     Dates: start: 20011201, end: 20030706
  2. VIOXX [Suspect]
     Route: 048
     Dates: start: 20030722, end: 20030727
  3. VIOXX [Suspect]
     Indication: ARTHRALGIA
     Route: 048
     Dates: start: 20011201, end: 20030706
  4. VIOXX [Suspect]
     Route: 048
     Dates: start: 20030722, end: 20030727
  5. PACERONE [Concomitant]
     Route: 048
  6. BETAPACE [Concomitant]
     Route: 048
  7. WARFARIN [Concomitant]
     Route: 048
  8. DIOVAN [Concomitant]
     Route: 048
  9. CARTIA XT [Concomitant]
     Route: 048
  10. HYZAAR [Concomitant]
     Route: 048
  11. PIROXICAM [Concomitant]
     Route: 048

REACTIONS (4)
  - ARRHYTHMIA [None]
  - ARTHROPATHY [None]
  - ATRIAL FIBRILLATION [None]
  - CEREBROVASCULAR ACCIDENT [None]
